FAERS Safety Report 9014182 (Version 1)
Quarter: 2013Q1

REPORT INFORMATION
  Report Type: Spontaneous
  Country: IT (occurrence: IT)
  Receive Date: 20130115
  Receipt Date: 20130115
  Transmission Date: 20140127
  Serious: Yes (Other)
  Sender: FDA-Public Use
  Company Number: PHHY2013IT002568

PATIENT
  Age: 71 Year
  Sex: Female
  Weight: 73 kg

DRUGS (6)
  1. ATORVASTATIN [Suspect]
     Dosage: 20 MG, UNK
     Route: 048
     Dates: start: 20121015, end: 20121021
  2. LERCADIP [Concomitant]
  3. KARVEZIDE [Concomitant]
  4. CARDIOASPIRIN [Concomitant]
  5. BISOPROLOL [Concomitant]
  6. PANTOPRAZOL [Concomitant]

REACTIONS (2)
  - Quality of life decreased [Unknown]
  - Erythema [Recovered/Resolved]
